FAERS Safety Report 10027433 (Version 5)
Quarter: 2014Q2

REPORT INFORMATION
  Report Type: Spontaneous
  Country: JP (occurrence: JP)
  Receive Date: 20140321
  Receipt Date: 20140419
  Transmission Date: 20141212
  Serious: Yes (Hospitalization)
  Sender: FDA-Public Use
  Company Number: JP-009507513-1403JPN005629

PATIENT
  Age: 72 Year
  Sex: Male

DRUGS (5)
  1. DECADRON PHOSPHATE INJECTION [Suspect]
     Indication: NEOPLASM SWELLING
     Dosage: 2 MG, TID
     Route: 051
     Dates: start: 20140218, end: 20140307
  2. DECADRON PHOSPHATE INJECTION [Suspect]
     Dosage: 2 MG, BID
     Route: 051
     Dates: start: 20140308, end: 20140310
  3. DECADRON PHOSPHATE INJECTION [Suspect]
     Dosage: 2 MG, QD
     Dates: start: 20140311, end: 20140314
  4. DECADRON PHOSPHATE INJECTION [Suspect]
     Dosage: 1 MG,TID
     Route: 051
     Dates: start: 20140315, end: 20140318
  5. [THERAPY UNSPECIFIED] [Concomitant]
     Dosage: DAILY DOSE UNKNOWN

REACTIONS (2)
  - Blood albumin decreased [Recovering/Resolving]
  - Protein total decreased [Recovering/Resolving]
